FAERS Safety Report 8807192 (Version 1)
Quarter: 2012Q4

REPORT INFORMATION
  Report Type: 
  Country: BR (occurrence: BR)
  Receive Date: 20120925
  Receipt Date: 20120925
  Transmission Date: 20130627
  Serious: Yes (Other)
  Sender: FDA-Public Use
  Company Number: BR-PFIZER INC-2012234608

PATIENT
  Age: 79 Year
  Sex: Male
  Weight: 63 kg

DRUGS (4)
  1. DONEPEZIL [Suspect]
     Indication: MEMORY IMPAIRMENT
     Dosage: 5 mg, 1x/day
     Route: 048
     Dates: start: 2010
  2. DONEPEZIL HYDROCHLORIDE [Suspect]
     Indication: MEMORY IMPAIRMENT
     Dosage: 10 mg, 1x/day
     Route: 048
  3. DONEPEZIL HYDROCHLORIDE [Suspect]
     Indication: AGGRESSION
  4. SERTRALINE HCL [Suspect]
     Dosage: UNK
     Dates: end: 20120829

REACTIONS (8)
  - Increased upper airway secretion [Unknown]
  - Tuberculosis [Unknown]
  - Bacterial infection [Unknown]
  - Cough [Unknown]
  - Throat irritation [Unknown]
  - Insomnia [Unknown]
  - Agitation [Unknown]
  - Aggression [Unknown]
